FAERS Safety Report 14569860 (Version 1)
Quarter: 2018Q1

REPORT INFORMATION
  Report Type: Not Available
  Country: US (occurrence: US)
  Receive Date: 20180224
  Receipt Date: 20180224
  Transmission Date: 20180509
  Serious: No
  Sender: FDA-Public Use
  Company Number: US-NEUROCRINE BIOSCIENCES INC.-2018NBI00229

PATIENT
  Age: 29 Year
  Sex: Female

DRUGS (10)
  1. FISH OIL [Concomitant]
     Active Substance: FISH OIL
  2. ACETAMINOPHEN. [Concomitant]
     Active Substance: ACETAMINOPHEN
  3. BENZTROPINE. [Concomitant]
     Active Substance: BENZTROPINE
  4. MULTIVITAMIN [Concomitant]
     Active Substance: VITAMINS
  5. INGREZZA [Suspect]
     Active Substance: VALBENAZINE
     Indication: TARDIVE DYSKINESIA
     Route: 048
     Dates: start: 20170404
  6. FERROUS SULFATE. [Concomitant]
     Active Substance: FERROUS SULFATE
  7. INVEGA [Concomitant]
     Active Substance: PALIPERIDONE
  8. VITAMIN D [Concomitant]
     Active Substance: CHOLECALCIFEROL
  9. LORAZEPAM. [Concomitant]
     Active Substance: LORAZEPAM
  10. DEPAKOTE [Concomitant]
     Active Substance: DIVALPROEX SODIUM

REACTIONS (2)
  - Tardive dyskinesia [Unknown]
  - Eye movement disorder [Unknown]

NARRATIVE: CASE EVENT DATE: 20171105
